FAERS Safety Report 16676737 (Version 2)
Quarter: 2019Q3

REPORT INFORMATION
  Report Type: Spontaneous
  Country: JP (occurrence: JP)
  Receive Date: 20190807
  Receipt Date: 20190920
  Transmission Date: 20191004
  Serious: Yes (Life-Threatening, Other)
  Sender: FDA-Public Use
  Company Number: JP-SAKK-2019SA210535AA

PATIENT
  Sex: Female
  Weight: 48 kg

DRUGS (4)
  1. NEOMALLERMIN [Concomitant]
     Active Substance: DEXCHLORPHENIRAMINE MALEATE
     Indication: DERMATITIS ATOPIC
     Dosage: 6 MG, BID
     Route: 048
     Dates: start: 1999
  2. DUPIXENT [Suspect]
     Active Substance: DUPILUMAB
     Indication: DERMATITIS ATOPIC
     Dosage: 300 MG, QOW
     Route: 058
     Dates: start: 20181127, end: 20190205
  3. ATARAX-P [HYDROXYZINE EMBONATE] [Concomitant]
     Indication: DERMATITIS ATOPIC
     Dosage: 25 MG, QD
     Route: 048
     Dates: start: 1999
  4. FULMETA [Concomitant]
     Active Substance: MOMETASONE
     Indication: DERMATITIS ATOPIC
     Dosage: 2-3 G PER DOSE, ONCE OR TWICE A DAY
     Route: 065
     Dates: start: 1999

REACTIONS (5)
  - Taste disorder [Unknown]
  - Pyloric stenosis [Unknown]
  - Nausea [Unknown]
  - Helicobacter infection [Unknown]
  - Gastric cancer [Unknown]

NARRATIVE: CASE EVENT DATE: 201901
